FAERS Safety Report 16565010 (Version 2)
Quarter: 2019Q3

REPORT INFORMATION
  Report Type: Spontaneous
  Country: FR (occurrence: FR)
  Receive Date: 20190712
  Receipt Date: 20190717
  Transmission Date: 20191004
  Serious: Yes (Other)
  Sender: FDA-Public Use
  Company Number: FR-ACCORD-138378

PATIENT
  Age: 22 Year
  Sex: Female

DRUGS (4)
  1. SERTRALINE [Suspect]
     Active Substance: SERTRALINE HYDROCHLORIDE
     Route: 048
     Dates: start: 20190612, end: 20190612
  2. ALPRAZOLAM. [Suspect]
     Active Substance: ALPRAZOLAM
     Dosage: 45 TABLETS OF 0.25 MG, 20 TABLETS OF 0.5 MG
     Route: 048
     Dates: start: 20190612, end: 20190612
  3. TERCIAN [Suspect]
     Active Substance: CYAMEMAZINE
     Indication: AGITATION
     Route: 048
     Dates: start: 20190613, end: 20190615
  4. DAFALGAN [Suspect]
     Active Substance: ACETAMINOPHEN
     Route: 048
     Dates: start: 20190612, end: 20190612

REACTIONS (3)
  - Suicide attempt [Unknown]
  - Hepatocellular injury [Recovering/Resolving]
  - Hypertransaminasaemia [Recovering/Resolving]

NARRATIVE: CASE EVENT DATE: 20190614
